FAERS Safety Report 4584803-9 (Version None)
Quarter: 2005Q1

REPORT INFORMATION
  Report Type: 
  Country: None (occurrence: None)
  Receive Date: 20050215
  Receipt Date: 20041214
  Transmission Date: 20050727
  Serious: Yes (Congenital Anomaly, Other)
  Sender: FDA-Public Use
  Company Number: 15803-1

PATIENT
  Age: 1 Year
  Weight: 2 kg

DRUGS (4)
  1. METHOTREXATE [Suspect]
     Indication: BONE SARCOMA
     Dosage: 146.4 G CUMUL.
     Dates: start: 20010807, end: 20020721
  2. DOXORUBICIN [Concomitant]
  3. CISPLATIN [Concomitant]
  4. MARCUMAR TABLETS [Concomitant]

REACTIONS (7)
  - CONGENITAL EYELID MALFORMATION [None]
  - CONGENITAL ORAL MALFORMATION [None]
  - CONGENITAL OSTEODYSTROPHY [None]
  - MACROCEPHALY [None]
  - MATERNAL DRUGS AFFECTING FOETUS [None]
  - SKULL MALFORMATION [None]
  - SMALL FOR DATES BABY [None]
